FAERS Safety Report 4333913-X (Version None)
Quarter: 2004Q2

REPORT INFORMATION
  Report Type: 
  Country: None (occurrence: None)
  Receive Date: 20040407
  Receipt Date: 20040331
  Transmission Date: 20050107
  Serious: Yes (Death, Hospitalization, Other)
  Sender: FDA-Public Use
  Company Number: DE-BRISTOL-MYERS SQUIBB COMPANY-12547873

PATIENT
  Age: 57 Year
  Sex: Male

DRUGS (2)
  1. MITOMYCIN-C BULK POWDER [Suspect]
     Indication: NON-SMALL CELL LUNG CANCER
     Dates: start: 20040213
  2. NAVELBINE [Suspect]
     Indication: NON-SMALL CELL LUNG CANCER
     Dates: start: 20040220

REACTIONS (8)
  - BLOOD PRESSURE IMMEASURABLE [None]
  - COMA [None]
  - DYSPNOEA [None]
  - LIVER FUNCTION TEST ABNORMAL [None]
  - PAIN [None]
  - PYREXIA [None]
  - SEPSIS [None]
  - SUPRAVENTRICULAR TACHYCARDIA [None]
